APPROVED DRUG PRODUCT: ESLICARBAZEPINE ACETATE
Active Ingredient: ESLICARBAZEPINE ACETATE
Strength: 600MG
Dosage Form/Route: TABLET;ORAL
Application: A211238 | Product #003 | TE Code: AB
Applicant: DR REDDYS LABORATORIES LTD
Approved: Jun 29, 2021 | RLD: No | RS: No | Type: RX